FAERS Safety Report 5927576-7 (Version None)
Quarter: 2008Q4

REPORT INFORMATION
  Report Type: 
  Country: None (occurrence: None)
  Receive Date: 20081021
  Receipt Date: 20081021
  Transmission Date: 20090506
  Serious: Yes (Hospitalization)
  Sender: FDA-Public Use
  Company Number: None

PATIENT
  Sex: Female
  Weight: 83.9154 kg

DRUGS (5)
  1. CAPECITABINE 500MG + 150 MG ROCHE [Suspect]
     Indication: PANCREATIC CARCINOMA
     Dosage: 1950MG BID DAYS 1-7 PO
     Route: 048
     Dates: start: 20080514, end: 20081014
  2. GEMCITABINE [Suspect]
     Indication: PANCREATIC CARCINOMA
     Dosage: 2040 Q 2 WEEKS IV
     Route: 042
     Dates: start: 20080514, end: 20081008
  3. ZOFRAN [Concomitant]
  4. ATIVAN [Concomitant]
  5. RAXANOL [Concomitant]

REACTIONS (4)
  - ABDOMINAL PAIN UPPER [None]
  - DYSPNOEA [None]
  - PYREXIA [None]
  - TROPONIN INCREASED [None]
